FAERS Safety Report 15555117 (Version 2)
Quarter: 2018Q4

REPORT INFORMATION
  Report Type: Spontaneous
  Country: US (occurrence: US)
  Receive Date: 20181026
  Receipt Date: 20181113
  Transmission Date: 20190205
  Serious: No
  Sender: FDA-Public Use
  Company Number: US-MYLANLABS-2018M1077238

PATIENT
  Sex: Male

DRUGS (1)
  1. CLONIDINE. [Suspect]
     Active Substance: CLONIDINE
     Indication: PRODUCT USED FOR UNKNOWN INDICATION
     Dosage: UNK
     Route: 062

REACTIONS (7)
  - Application site reaction [Unknown]
  - Application site discolouration [Unknown]
  - Product adhesion issue [Unknown]
  - Skin disorder [Unknown]
  - Feeling abnormal [Unknown]
  - Application site haemorrhage [Unknown]
  - Application site pruritus [Unknown]
